FAERS Safety Report 4688563-2 (Version None)
Quarter: 2005Q2

REPORT INFORMATION
  Report Type: 
  Country: None (occurrence: None)
  Receive Date: 20050609
  Receipt Date: 20050531
  Transmission Date: 20051028
  Serious: Yes (Life-Threatening, Hospitalization)
  Sender: FDA-Public Use
  Company Number: 2005-04-0026

PATIENT
  Age: 44 Year
  Sex: Male
  Weight: 92 kg

DRUGS (5)
  1. TEMODAL [Suspect]
     Indication: OLIGODENDROGLIOMA
     Dosage: 200 MG ORAL; 8 CYCLE(S)
     Route: 048
  2. KYTRIL [Concomitant]
  3. TEGRETOL [Concomitant]
  4. DILANTIN [Concomitant]
  5. LORAZEPAM [Concomitant]

REACTIONS (2)
  - ANXIETY [None]
  - MYOCARDIAL INFARCTION [None]
